FAERS Safety Report 6767770-9 (Version None)
Quarter: 2010Q2

REPORT INFORMATION
  Report Type: 
  Country: None (occurrence: None)
  Receive Date: 20100614
  Receipt Date: 20100601
  Transmission Date: 20101027
  Serious: Yes (Other)
  Sender: FDA-Public Use
  Company Number: PHHY2010US35715

PATIENT
  Sex: Female

DRUGS (4)
  1. VALTURNA [Suspect]
     Dosage: 150 MG
     Dates: start: 20100520
  2. MEGESTROL ACETATE [Concomitant]
     Dosage: 40 MG
  3. CARDURA [Concomitant]
     Dosage: 4 MG
  4. CARVEDILOL [Concomitant]
     Dosage: 25 MG

REACTIONS (5)
  - BLOOD PRESSURE INCREASED [None]
  - CONVULSION [None]
  - DIARRHOEA [None]
  - PNEUMONIA [None]
  - VOMITING [None]
